FAERS Safety Report 15585710 (Version 1)
Quarter: 2018Q4

REPORT INFORMATION
  Report Type: Spontaneous
  Country: CN (occurrence: CN)
  Receive Date: 20181105
  Receipt Date: 20181105
  Transmission Date: 20190205
  Serious: Yes (Other)
  Sender: FDA-Public Use
  Company Number: CN-PFIZER INC-2018446085

PATIENT
  Age: 91 Year
  Sex: Male
  Weight: 60 kg

DRUGS (5)
  1. AMIKACIN SULFATE. [Suspect]
     Active Substance: AMIKACIN SULFATE
     Indication: PNEUMONIA
  2. TAZOCIN [Suspect]
     Active Substance: PIPERACILLIN SODIUM\TAZOBACTAM SODIUM
     Indication: INFECTION
  3. TAZOCIN [Suspect]
     Active Substance: PIPERACILLIN SODIUM\TAZOBACTAM SODIUM
     Indication: PNEUMONIA
     Dosage: 4.5 G, 3X/DAY
     Route: 041
     Dates: start: 20180911, end: 20180912
  4. AZTREONAM. [Suspect]
     Active Substance: AZTREONAM
     Indication: INFECTION
     Dosage: 200 UG, 1X/DAY
     Route: 041
     Dates: start: 20180912, end: 20180912
  5. AMIKACIN SULFATE. [Suspect]
     Active Substance: AMIKACIN SULFATE
     Indication: INFECTION
     Dosage: 0.6 G, 1X/DAY
     Route: 041
     Dates: start: 20180911, end: 20180913

REACTIONS (3)
  - Rash [Recovered/Resolved]
  - Altered state of consciousness [Unknown]
  - Pyrexia [Recovered/Resolved]

NARRATIVE: CASE EVENT DATE: 20180912
